FAERS Safety Report 19921463 (Version 1)
Quarter: 2021Q4

REPORT INFORMATION
  Report Type: Spontaneous
  Country: US (occurrence: US)
  Receive Date: 20211005
  Receipt Date: 20211005
  Transmission Date: 20220303
  Serious: No
  Sender: FDA-Public Use
  Company Number: US-MYLANLABS-2021M1068634

PATIENT
  Age: 35 Year
  Sex: Male

DRUGS (2)
  1. EPINEPHRINE [Suspect]
     Active Substance: EPINEPHRINE
     Indication: Seizure
     Dosage: UNK
     Dates: start: 20210430
  2. BioNTech COVID-19 Vaccine/COMIRNATY [Concomitant]
     Dosage: UNK
     Dates: start: 20210430

REACTIONS (1)
  - Off label use [Unknown]

NARRATIVE: CASE EVENT DATE: 20210430
